FAERS Safety Report 4749467-X (Version None)
Quarter: 2005Q3

REPORT INFORMATION
  Report Type: 
  Country: None (occurrence: None)
  Receive Date: 20050822
  Receipt Date: 20050602
  Transmission Date: 20060218
  Serious: No
  Sender: FDA-Public Use
  Company Number: GB-BOEHRINGER INGELHEIM PHARMACEUTICALS, INC.-2005-BP-09397YA

PATIENT
  Sex: Male

DRUGS (1)
  1. FLOMAX [Suspect]
     Indication: URINARY HESITATION
     Route: 048

REACTIONS (2)
  - EYE OPERATION COMPLICATION [None]
  - IRIS DISORDER [None]
